FAERS Safety Report 9034828 (Version 1)
Quarter: 2013Q1

REPORT INFORMATION
  Report Type: Spontaneous
  Country: US (occurrence: None)
  Receive Date: 20130116
  Receipt Date: 20130116
  Transmission Date: 20140127
  Serious: No
  Sender: FDA-Public Use
  Company Number: None

PATIENT
  Sex: Female
  Weight: 64.18 kg

DRUGS (2)
  1. CARBOPLATIN [Suspect]
  2. PACLITAXEL (TAXOL) [Suspect]

REACTIONS (6)
  - Hydronephrosis [None]
  - Nephrolithiasis [None]
  - Uterine leiomyoma [None]
  - Uterine enlargement [None]
  - Vaginal haemorrhage [None]
  - Neutrophil count decreased [None]
